FAERS Safety Report 13764021 (Version 3)
Quarter: 2022Q3

REPORT INFORMATION
  Report Type: Spontaneous
  Country: US (occurrence: US)
  Receive Date: 20170718
  Receipt Date: 20220713
  Transmission Date: 20221026
  Serious: No
  Sender: FDA-Public Use
  Company Number: US-VANDA PHARMACEUTICALS, INC-2017TASUS001529

PATIENT
  Sex: Male

DRUGS (3)
  1. HETLIOZ [Suspect]
     Active Substance: TASIMELTEON
     Indication: Non-24-hour sleep-wake disorder
     Dosage: 20 MG, EVERY 24 HOURS
     Route: 048
     Dates: start: 20141216, end: 201901
  2. HETLIOZ [Suspect]
     Active Substance: TASIMELTEON
     Indication: Blindness
  3. HETLIOZ [Suspect]
     Active Substance: TASIMELTEON
     Indication: Non-24-hour sleep-wake disorder

REACTIONS (3)
  - Insomnia [Unknown]
  - Middle insomnia [Unknown]
  - Drug ineffective [Unknown]
